FAERS Safety Report 16780756 (Version 4)
Quarter: 2019Q3

REPORT INFORMATION
  Report Type: Spontaneous
  Country: US (occurrence: US)
  Receive Date: 20190906
  Receipt Date: 20190920
  Transmission Date: 20191005
  Serious: Yes (Life-Threatening, Hospitalization, Other)
  Sender: FDA-Public Use
  Company Number: US-PFIZER INC-2019372289

PATIENT
  Age: 61 Year
  Sex: Male

DRUGS (1)
  1. METHOTREXATE SODIUM. [Suspect]
     Active Substance: METHOTREXATE SODIUM
     Indication: PSORIASIS
     Dosage: UP TO 25 MG FIVE DAYS/WEEK

REACTIONS (4)
  - Prescription drug used without a prescription [Unknown]
  - Toxicity to various agents [Recovering/Resolving]
  - Epidermal necrosis [Recovering/Resolving]
  - Pancytopenia [Unknown]
